FAERS Safety Report 9486209 (Version 2)
Quarter: 2013Q3

REPORT INFORMATION
  Report Type: Spontaneous
  Country: ES (occurrence: ES)
  Receive Date: 20130829
  Receipt Date: 20130906
  Transmission Date: 20140515
  Serious: Yes (Other)
  Sender: FDA-Public Use
  Company Number: ES-PFIZER INC-2013248631

PATIENT
  Age: 68 Year
  Sex: Male

DRUGS (5)
  1. ACOVIL [Suspect]
     Dosage: UNK
     Route: 048
     Dates: start: 20130725
  2. SIMVASTATIN [Suspect]
     Dosage: UNK
     Route: 048
     Dates: start: 20130725
  3. METFORMIN HCL [Suspect]
     Dosage: UNK
     Route: 048
     Dates: start: 20130725
  4. COROPRES [Suspect]
     Dosage: UNK
     Route: 048
     Dates: start: 20130725
  5. INALADUO [Suspect]
     Indication: EMPHYSEMA
     Dosage: 1 DF, EVERY 12 HOURS
     Route: 055
     Dates: start: 2010, end: 20130729

REACTIONS (2)
  - Angioedema [Recovered/Resolved]
  - Anaphylactic shock [Recovered/Resolved]
